FAERS Safety Report 9907131 (Version 5)
Quarter: 2021Q1

REPORT INFORMATION
  Report Type: Spontaneous
  Country: FI (occurrence: FI)
  Receive Date: 20140218
  Receipt Date: 20210224
  Transmission Date: 20210420
  Serious: Yes (Life-Threatening, Hospitalization, Other)
  Sender: FDA-Public Use
  Company Number: FI-PFIZER INC-2014045070

PATIENT
  Sex: Male

DRUGS (6)
  1. PREDNISOLON [Suspect]
     Active Substance: PREDNISOLONE
     Dosage: UNK UNK,UNK
     Route: 065
  2. FURESIS [Suspect]
     Active Substance: FUROSEMIDE
     Dosage: UNK UNK,UNK
     Route: 065
  3. CARDACE (RAMIPRIL) [Suspect]
     Active Substance: RAMIPRIL
     Dosage: UNK UNK,UNK
     Route: 048
  4. CARTEXAN [Suspect]
     Active Substance: CHONDROITIN SULFATE SODIUM NOS
     Dosage: UNK UNK,UNK
     Route: 065
  5. DIFORMIN RETARD [Suspect]
     Active Substance: METFORMIN HYDROCHLORIDE
     Dosage: UNK UNK,UNK
     Route: 048
  6. CARVEDILOL. [Suspect]
     Active Substance: CARVEDILOL
     Dosage: UNK UNK,UNK
     Route: 065

REACTIONS (15)
  - Pneumonia [Unknown]
  - Diabetes mellitus [Unknown]
  - Fluid retention [Unknown]
  - Blood glucose increased [Unknown]
  - Erythema [Not Recovered/Not Resolved]
  - Onycholysis [Not Recovered/Not Resolved]
  - Pain in extremity [Not Recovered/Not Resolved]
  - Cardiac failure [Unknown]
  - Chronic obstructive pulmonary disease [Unknown]
  - Myocardial infarction [Unknown]
  - Intentional product misuse [Unknown]
  - Abdominal discomfort [Unknown]
  - Drug abuse [Unknown]
  - Overdose [Unknown]
  - Diarrhoea [Unknown]
